FAERS Safety Report 16158526 (Version 1)
Quarter: 2019Q2

REPORT INFORMATION
  Report Type: Spontaneous
  Country: US (occurrence: US)
  Receive Date: 20190301
  Receipt Date: 20190301
  Transmission Date: 20190711
  Serious: Yes (Hospitalization)
  Sender: FDA-Public Use
  Company Number: None

PATIENT
  Age: 1 Year
  Sex: Female

DRUGS (1)
  1. TRACLEER [Suspect]
     Active Substance: BOSENTAN
     Indication: PULMONARY ARTERIAL HYPERTENSION
     Route: 048
     Dates: start: 20190126

REACTIONS (5)
  - Transfusion [None]
  - Urinary tract infection [None]
  - Vomiting [None]
  - Anaemia [None]
  - Pyrexia [None]

NARRATIVE: CASE EVENT DATE: 20190203
